FAERS Safety Report 16658147 (Version 1)
Quarter: 2019Q3

REPORT INFORMATION
  Report Type: Spontaneous
  Country: FR (occurrence: FR)
  Receive Date: 20190801
  Receipt Date: 20190801
  Transmission Date: 20191004
  Serious: Yes (Hospitalization, Other)
  Sender: FDA-Public Use
  Company Number: FR-GLAXOSMITHKLINE-FR2019135835

PATIENT
  Age: 53 Year
  Sex: Female

DRUGS (19)
  1. THERALENE (ALIMEMAZINE + AMMONIUM + EPHEDRINE + ETHYLMORPHINE) [Concomitant]
     Indication: POISONING DELIBERATE
     Dosage: UNK
     Route: 048
     Dates: end: 20190331
  2. LASILIX [Suspect]
     Active Substance: FUROSEMIDE
     Indication: HYPERNATRAEMIA
     Dosage: 40 MG, QD
     Route: 042
     Dates: start: 20190403, end: 20190405
  3. HIDONAC [Suspect]
     Active Substance: ACETYLCYSTEINE
     Indication: POISONING
     Dosage: ACCORDING TO CPR PROTOCOL WITH ADPATATION TO WEIGHT
     Route: 042
  4. XEROQUEL [Concomitant]
     Active Substance: QUETIAPINE FUMARATE
     Indication: DEPRESSION
     Dosage: UNK
     Route: 048
     Dates: end: 20190331
  5. AUGMENTIN [Suspect]
     Active Substance: AMOXICILLIN\CLAVULANATE POTASSIUM
     Indication: ANTIBIOTIC THERAPY
     Dosage: 2G / 200MG EVERY 12H
     Route: 042
     Dates: start: 20190401, end: 20190409
  6. BURINEX [Suspect]
     Active Substance: BUMETANIDE
     Indication: HYPERNATRAEMIA
     Dosage: 2 MG, QD
     Route: 042
     Dates: start: 20190405
  7. EUPANTOL [Concomitant]
     Active Substance: PANTOPRAZOLE SODIUM
     Indication: GASTRIC ULCER
     Dosage: UNK
     Route: 042
     Dates: start: 20190402
  8. EFFERALGAN [Suspect]
     Active Substance: ACETAMINOPHEN
     Indication: POISONING DELIBERATE
     Dosage: IN TOTAL
     Route: 048
     Dates: start: 20190401, end: 20190401
  9. MIDAZOLAM [Suspect]
     Active Substance: MIDAZOLAM HYDROCHLORIDE
     Indication: SEDATION
     Dosage: UNK
     Route: 042
     Dates: start: 20190402
  10. LAMICTAL [Suspect]
     Active Substance: LAMOTRIGINE
     Indication: POISONING DELIBERATE
     Dosage: IN TOTAL
     Route: 048
     Dates: start: 20190401, end: 20190401
  11. FRAGMINE [Suspect]
     Active Substance: DALTEPARIN SODIUM
     Indication: THROMBOSIS PROPHYLAXIS
     Dosage: 1 DF, QD
     Route: 058
     Dates: start: 20190402
  12. HYDROCORTISONE. [Suspect]
     Active Substance: HYDROCORTISONE
     Indication: PRODUCT USED FOR UNKNOWN INDICATION
     Dosage: UNK
     Route: 042
     Dates: start: 20190402
  13. FLUOXETINE HYDROCHLORIDE. [Suspect]
     Active Substance: FLUOXETINE HYDROCHLORIDE
     Indication: POISONING DELIBERATE
     Dosage: IN TOTAL
     Route: 048
     Dates: start: 20190401, end: 20190401
  14. THERALENE (ALIMEMAZINE + AMMONIUM + EPHEDRINE + ETHYLMORPHINE) [Concomitant]
     Indication: DEPRESSION
     Dosage: UNK
     Route: 048
     Dates: start: 20190401, end: 20190401
  15. CELOCURINE [Suspect]
     Active Substance: SUCCINYLCHOLINE
     Indication: ANAESTHESIA
     Dosage: UNK
     Route: 041
     Dates: start: 20190401, end: 20190401
  16. KETAMINE [Suspect]
     Active Substance: KETAMINE
     Indication: ANAESTHESIA
     Dosage: UNK
     Route: 041
     Dates: start: 20190401, end: 20190401
  17. CALCIPARINE [Concomitant]
     Active Substance: HEPARIN CALCIUM
     Indication: THROMBOSIS PROPHYLAXIS
     Dosage: UNK
     Route: 058
     Dates: start: 20190405, end: 20190412
  18. GENTAMICINE [Suspect]
     Active Substance: GENTAMICIN
     Indication: ANTIBIOTIC THERAPY
     Dosage: 400 MG, QD
     Route: 042
     Dates: start: 20190402, end: 20190405
  19. NARCAN [Suspect]
     Active Substance: NALOXONE HYDROCHLORIDE
     Indication: PRODUCT USED FOR UNKNOWN INDICATION
     Dosage: IN TOTAL
     Route: 042
     Dates: start: 20190401, end: 20190401

REACTIONS (2)
  - Poisoning deliberate [Recovered/Resolved]
  - Thrombocytopenia [Recovered/Resolved]

NARRATIVE: CASE EVENT DATE: 20190401
